FAERS Safety Report 9888981 (Version 3)
Quarter: 2014Q4

REPORT INFORMATION
  Report Type: Spontaneous
  Country: US (occurrence: None)
  Receive Date: 20140207
  Receipt Date: 20141205
  Transmission Date: 20150529
  Serious: Yes (Disabling)
  Sender: FDA-Public Use
  Company Number: CIO13041102

PATIENT
  Age: 62 Year
  Sex: Female
  Weight: 79.4 kg

DRUGS (9)
  1. FISH OIL [Concomitant]
     Active Substance: FISH OIL
  2. DIOVAN HCT [Concomitant]
     Active Substance: HYDROCHLOROTHIAZIDE\VALSARTAN
  3. CETIRIZINE HYDROCHLORIDE. [Concomitant]
     Active Substance: CETIRIZINE HYDROCHLORIDE
  4. DAWN ULTRA CONCENTRATED APPLE BLOSSOM [Suspect]
     Active Substance: TRICLOSAN
     Dosage: 2-3 SQUIRTS, 3/DAY, OTHER
     Route: 061
     Dates: start: 201301
  5. VITAMIN E [Concomitant]
     Active Substance: .ALPHA.-TOCOPHEROL
  6. MULTIVITAMIN AND MINERAL [Concomitant]
  7. FLUTICASONE FUROATE [Concomitant]
     Active Substance: FLUTICASONE FUROATE
  8. ATIVAN [Concomitant]
     Active Substance: LORAZEPAM
  9. ATORVASTATIN CALCIUM. [Concomitant]
     Active Substance: ATORVASTATIN CALCIUM

REACTIONS (20)
  - Headache [None]
  - Odynophagia [None]
  - Parosmia [None]
  - Dysphagia [None]
  - Choking [None]
  - Dysgeusia [None]
  - Vomiting [None]
  - Painful defaecation [None]
  - Aspiration [None]
  - Faeces discoloured [None]
  - Anosmia [None]
  - Nausea [None]
  - Upper-airway cough syndrome [None]
  - Dyspepsia [None]
  - Rectal haemorrhage [None]
  - Ageusia [None]
  - Oral pruritus [None]
  - Weight decreased [None]
  - Abdominal pain [None]
  - Cerumen impaction [None]

NARRATIVE: CASE EVENT DATE: 201301
